FAERS Safety Report 20496949 (Version 2)
Quarter: 2022Q2

REPORT INFORMATION
  Report Type: Spontaneous
  Country: DE (occurrence: DE)
  Receive Date: 20220221
  Receipt Date: 20220428
  Transmission Date: 20220721
  Serious: Yes (Other)
  Sender: FDA-Public Use
  Company Number: DE-UCBSA-2022008278

PATIENT
  Age: 33 Year
  Sex: Male
  Weight: 125 kg

DRUGS (3)
  1. LEVETIRACETAM [Suspect]
     Active Substance: LEVETIRACETAM
     Indication: Epilepsy
     Dosage: 4000 MILLIGRAM, UNK
  2. LEVETIRACETAM [Suspect]
     Active Substance: LEVETIRACETAM
     Dosage: 3000 MILLIGRAM, 2X/DAY (BID)
     Dates: start: 202108
  3. LACOSAMIDE [Concomitant]
     Active Substance: LACOSAMIDE
     Indication: Epilepsy
     Dosage: 200 MILLIGRAM, 2X/DAY (BID)
     Dates: start: 202109

REACTIONS (3)
  - Erectile dysfunction [Unknown]
  - Drug level decreased [Unknown]
  - Overdose [Unknown]

NARRATIVE: CASE EVENT DATE: 20210801
